FAERS Safety Report 6467569-7 (Version None)
Quarter: 2009Q4

REPORT INFORMATION
  Report Type: 
  Country: None (occurrence: None)
  Receive Date: 20091202
  Receipt Date: 20091123
  Transmission Date: 20100525
  Serious: Yes (Life-Threatening, Other)
  Sender: FDA-Public Use
  Company Number: US-BAXTER-2009BH018090

PATIENT
  Age: 54 Year
  Sex: Female
  Weight: 71 kg

DRUGS (6)
  1. DOBUTAMINE HYDROCHLORIDE [Suspect]
     Indication: POSITIVE CARDIAC INOTROPIC EFFECT
     Route: 042
     Dates: start: 20091116, end: 20091101
  2. BLINDED THERAPY [Suspect]
     Indication: SEPSIS
     Route: 042
     Dates: start: 20091116, end: 20091116
  3. BLINDED THERAPY [Suspect]
     Route: 042
     Dates: start: 20091117
  4. POTASSIUM PHOSPHATE DIBASIC [Concomitant]
     Indication: DRUG USE FOR UNKNOWN INDICATION
     Route: 065
  5. SODIUM PHOSPHATE (32 P) [Concomitant]
     Indication: DRUG USE FOR UNKNOWN INDICATION
     Route: 065
  6. LASIX [Concomitant]
     Indication: DRUG USE FOR UNKNOWN INDICATION
     Route: 065
     Dates: start: 20091116

REACTIONS (1)
  - ATRIAL FIBRILLATION [None]
